FAERS Safety Report 6392593-2 (Version None)
Quarter: 2009Q4

REPORT INFORMATION
  Report Type: 
  Country: None (occurrence: None)
  Receive Date: 20091007
  Receipt Date: 20090720
  Transmission Date: 20100525
  Serious: No
  Sender: FDA-Public Use
  Company Number: US-ALLERGAN-0909230US

PATIENT
  Age: 80 Year
  Sex: Female

DRUGS (2)
  1. LATISSE [Suspect]
     Indication: GROWTH OF EYELASHES
     Dosage: UNK, QHS
     Dates: start: 20090501
  2. EVISTA [Concomitant]
     Indication: BONE DENSITY DECREASED
     Dosage: UNK, QD

REACTIONS (2)
  - ASTHENOPIA [None]
  - EYE IRRITATION [None]
